FAERS Safety Report 15643541 (Version 3)
Quarter: 2023Q2

REPORT INFORMATION
  Report Type: Spontaneous
  Country: HU (occurrence: HU)
  Receive Date: 20181121
  Receipt Date: 20230526
  Transmission Date: 20230721
  Serious: Yes (Other)
  Sender: FDA-Public Use
  Company Number: HU-NOVPHSZ-PHHY2018HU083279

PATIENT

DRUGS (20)
  1. SEVOFLURANE [Suspect]
     Active Substance: SEVOFLURANE
     Indication: Product used for unknown indication
     Dosage: 1.5-2.0 %
  2. MIDAZOLAM [Suspect]
     Active Substance: MIDAZOLAM
     Indication: Surgery
     Dosage: 5 MG, UNK
     Route: 065
  3. MIDAZOLAM [Suspect]
     Active Substance: MIDAZOLAM
     Dosage: 7.5 MG, UNK
     Route: 048
  4. MIDAZOLAM [Suspect]
     Active Substance: MIDAZOLAM
     Dosage: 2 UG/ML
     Route: 048
  5. PENAMECILLIN [Suspect]
     Active Substance: PENAMECILLIN
     Indication: Alpha haemolytic streptococcal infection
     Dosage: UNK
     Route: 065
  6. PIPECURONIUM [Suspect]
     Active Substance: PIPECURONIUM
     Indication: Induction of anaesthesia
     Dosage: 4 MG, UNK
     Route: 042
  7. ISOFLURANE [Suspect]
     Active Substance: ISOFLURANE
     Indication: Anaesthesia
     Dosage: 0.5-1.0 %
  8. HEPARIN SODIUM [Suspect]
     Active Substance: HEPARIN SODIUM
     Indication: Product used for unknown indication
     Dosage: 10 IU, UNK
     Route: 065
  9. HEPARIN SODIUM [Suspect]
     Active Substance: HEPARIN SODIUM
     Dosage: 20 IU, UNK
     Route: 065
  10. EPHEDRINE [Suspect]
     Active Substance: EPHEDRINE
     Indication: Blood pressure management
     Dosage: 25 MG/H, UNK
     Route: 042
  11. EPHEDRINE [Suspect]
     Active Substance: EPHEDRINE
     Dosage: 5 MG, 3 TIMES
     Route: 042
  12. EPHEDRINE [Suspect]
     Active Substance: EPHEDRINE
     Dosage: 5 MILLIGRAM, 11 TIMES
     Route: 042
  13. DIGOXIN [Suspect]
     Active Substance: DIGOXIN
     Indication: Product used for unknown indication
     Dosage: UNK
     Route: 065
  14. PROTAMINE SULFATE [Suspect]
     Active Substance: PROTAMINE SULFATE
     Indication: Product used for unknown indication
     Dosage: 200 MG, UNK
     Route: 065
  15. ENOXAPARIN SODIUM [Suspect]
     Active Substance: ENOXAPARIN SODIUM
     Indication: Product used for unknown indication
     Dosage: UNK
     Route: 065
  16. SUFENTANIL [Suspect]
     Active Substance: SUFENTANIL
     Indication: Induction of anaesthesia
     Dosage: 10 UG, UNK
     Route: 065
  17. PROPOFOL [Suspect]
     Active Substance: PROPOFOL
     Indication: Product used for unknown indication
     Dosage: 2-1.5  ?G/ML
     Route: 042
  18. METOPROLOL [Suspect]
     Active Substance: METOPROLOL
     Indication: Product used for unknown indication
     Dosage: UNK
     Route: 065
  19. AMPICILLIN SODIUM [Suspect]
     Active Substance: AMPICILLIN SODIUM
     Indication: Product used for unknown indication
     Dosage: 2 GRAM PER 4HRS
     Route: 065
  20. PANTOPRAZOLE [Suspect]
     Active Substance: PANTOPRAZOLE
     Indication: Surgery
     Dosage: 40 MG, UNK
     Route: 042

REACTIONS (14)
  - Cardiac valve abscess [Unknown]
  - Hypervolaemia [Unknown]
  - Cardiac valve vegetation [Unknown]
  - Hyperthyroidism [Unknown]
  - Cardiac failure [Unknown]
  - Anaemia [Unknown]
  - Thyroid cyst [Unknown]
  - Hypokinesia [Unknown]
  - Sinus tachycardia [Unknown]
  - Ejection fraction decreased [Recovered/Resolved]
  - Alpha haemolytic streptococcal infection [Unknown]
  - Dyspnoea [Unknown]
  - Orthopnoea [Unknown]
  - Maternal exposure during pregnancy [Unknown]
